FAERS Safety Report 17143494 (Version 1)
Quarter: 2019Q4

REPORT INFORMATION
  Report Type: Report from Study
  Country: US (occurrence: US)
  Receive Date: 20191212
  Receipt Date: 20191212
  Transmission Date: 20200122
  Serious: Yes (Other)
  Sender: FDA-Public Use
  Company Number: US-SA-2017SA116359

PATIENT
  Age: 41 Year
  Sex: Female

DRUGS (3)
  1. ALEMTUZUMAB [Suspect]
     Active Substance: ALEMTUZUMAB
     Indication: MULTIPLE SCLEROSIS
     Dosage: 12 MG, QD
     Route: 041
     Dates: start: 20170619, end: 20170623
  2. ACICLOVIR [Suspect]
     Active Substance: ACYCLOVIR
     Dosage: BID
     Route: 065
     Dates: end: 201708
  3. ACICLOVIR [Suspect]
     Active Substance: ACYCLOVIR
     Dosage: QD
     Route: 065
     Dates: start: 201708, end: 201808

REACTIONS (20)
  - Fatigue [Not Recovered/Not Resolved]
  - Dyspnoea [Not Recovered/Not Resolved]
  - Vascular access site complication [Not Recovered/Not Resolved]
  - Sensation of foreign body [Recovered/Resolved]
  - Injection site mass [Not Recovered/Not Resolved]
  - Infection [Unknown]
  - Burning sensation [Recovered/Resolved]
  - Vaginal haemorrhage [Not Recovered/Not Resolved]
  - Poor venous access [Unknown]
  - Poor quality sleep [Recovered/Resolved]
  - Dysphagia [Recovered/Resolved]
  - Anxiety [Not Recovered/Not Resolved]
  - Insomnia [Not Recovered/Not Resolved]
  - Headache [Recovered/Resolved]
  - Hallucination [Recovered/Resolved]
  - Urticaria [Recovered/Resolved]
  - Urticaria [Recovered/Resolved]
  - Pyrexia [Recovered/Resolved]
  - Blister [Recovered/Resolved]
  - Malaise [Unknown]

NARRATIVE: CASE EVENT DATE: 201706
